FAERS Safety Report 4446218-3 (Version None)
Quarter: 2004Q3

REPORT INFORMATION
  Report Type: 
  Country: None (occurrence: None)
  Receive Date: 20040902
  Receipt Date: 20040820
  Transmission Date: 20050211
  Serious: Yes (Other)
  Sender: FDA-Public Use
  Company Number: 2004058968

PATIENT
  Sex: Female

DRUGS (1)
  1. CYCLOKAPRON (TRANEXAMIC ACID) [Suspect]
     Indication: VAGINAL HAEMORRHAGE
     Dosage: 500 MG TID, ORAL
     Route: 048

REACTIONS (1)
  - MASS [None]
